FAERS Safety Report 6849392-4 (Version None)
Quarter: 2010Q3

REPORT INFORMATION
  Report Type: 
  Country: None (occurrence: None)
  Receive Date: 20100716
  Receipt Date: 20100706
  Transmission Date: 20110219
  Serious: Yes (Hospitalization)
  Sender: FDA-Public Use
  Company Number: CH-ELI_LILLY_AND_COMPANY-CH201004008198

PATIENT
  Age: 32 Year
  Sex: Male

DRUGS (2)
  1. ZYPREXA [Suspect]
     Indication: AUTISM
     Dosage: 20 MG, DAILY (1/D)
     Route: 048
     Dates: start: 20020129, end: 20060426
  2. VALIUM [Concomitant]
     Indication: AGITATION
     Dosage: UNK, UNKNOWN
     Route: 048

REACTIONS (3)
  - HYPONATRAEMIA [None]
  - OFF LABEL USE [None]
  - RHABDOMYOLYSIS [None]
